FAERS Safety Report 8136499-7 (Version None)
Quarter: 2012Q1

REPORT INFORMATION
  Report Type: 
  Country: None (occurrence: None)
  Receive Date: 20120214
  Receipt Date: 20120208
  Transmission Date: 20120608
  Serious: Yes (Other)
  Sender: FDA-Public Use
  Company Number: US-ROCHE-1029426

PATIENT
  Sex: Male
  Weight: 88.53 kg

DRUGS (1)
  1. ACCUTANE [Suspect]
     Indication: ACNE
     Dates: start: 19951014, end: 19960304

REACTIONS (7)
  - DEPRESSION [None]
  - COLITIS ULCERATIVE [None]
  - INTESTINAL OBSTRUCTION [None]
  - CROHN'S DISEASE [None]
  - EMOTIONAL DISTRESS [None]
  - INFLAMMATORY BOWEL DISEASE [None]
  - ATTENTION DEFICIT/HYPERACTIVITY DISORDER [None]
